FAERS Safety Report 12934294 (Version 6)
Quarter: 2018Q4

REPORT INFORMATION
  Report Type: Report from Study
  Country: BR (occurrence: BR)
  Receive Date: 20161111
  Receipt Date: 20181101
  Transmission Date: 20190204
  Serious: Yes (Hospitalization, Other)
  Sender: FDA-Public Use
  Company Number: PHHY2016BR154748

PATIENT
  Age: 74 Year
  Sex: Male
  Weight: 84 kg

DRUGS (2)
  1. EXJADE [Suspect]
     Active Substance: DEFERASIROX
     Indication: IRON OVERLOAD
     Dosage: 500 MG, QD
     Route: 048
  2. EXJADE [Suspect]
     Active Substance: DEFERASIROX
     Indication: SERUM FERRITIN INCREASED
     Dosage: 1000 DF, QD (2 DF QD)
     Route: 048

REACTIONS (14)
  - Inflammation [Unknown]
  - Visual impairment [Unknown]
  - Hepatic cirrhosis [Not Recovered/Not Resolved]
  - Retinal disorder [Unknown]
  - Anaemia [Unknown]
  - Pain [Unknown]
  - Hypoacusis [Not Recovered/Not Resolved]
  - Abdominal pain [Unknown]
  - Abdominal infection [Unknown]
  - Eating disorder [Unknown]
  - Weight decreased [Unknown]
  - Hepatic cancer [Not Recovered/Not Resolved]
  - Concomitant disease aggravated [Not Recovered/Not Resolved]
  - Hepatic steatosis [Not Recovered/Not Resolved]

NARRATIVE: CASE EVENT DATE: 201804
